FAERS Safety Report 8173458-2 (Version None)
Quarter: 2012Q1

REPORT INFORMATION
  Report Type: 
  Country: None (occurrence: None)
  Receive Date: 20120224
  Receipt Date: 20120215
  Transmission Date: 20120608
  Serious: Yes (Hospitalization, Other)
  Sender: FDA-Public Use
  Company Number: 20120070

PATIENT
  Age: 66 Year
  Sex: Female
  Weight: 65.7716 kg

DRUGS (11)
  1. STERILE WATER FOR INJECTION [Concomitant]
  2. VITAMIN B COMPLEX CAP [Concomitant]
  3. THYROID TAB [Concomitant]
  4. NEXIUM [Concomitant]
  5. CALCIUM GLUCONATE INJ [Suspect]
     Indication: FATIGUE
     Dosage: INTRAVENOUS DRIP
     Route: 041
     Dates: start: 20120207, end: 20120207
  6. CYANOCOBALAMIN [Concomitant]
  7. ASCORBIC ACID [Concomitant]
  8. MINOCYCLINE HCL [Concomitant]
  9. TRACE METAL ADDITIVE IN NACL [Suspect]
     Indication: FATIGUE
     Dosage: 1 ML, OVER 55 MINUTES, INTRAVENOUS DRIP
     Route: 041
     Dates: start: 20120207, end: 20120207
  10. ADVAIR DISKUS 100/50 [Concomitant]
  11. PRASTERONE [Concomitant]

REACTIONS (13)
  - FEELING ABNORMAL [None]
  - DIZZINESS [None]
  - WRONG TECHNIQUE IN DRUG USAGE PROCESS [None]
  - OFF LABEL USE [None]
  - WHITE BLOOD CELL COUNT INCREASED [None]
  - FATIGUE [None]
  - PYREXIA [None]
  - INFUSION RELATED REACTION [None]
  - TACHYCARDIA [None]
  - NAUSEA [None]
  - PRODUCT CONTAMINATION MICROBIAL [None]
  - CHILLS [None]
  - PALLOR [None]
